FAERS Safety Report 23629668 (Version 1)
Quarter: 2024Q1

REPORT INFORMATION
  Report Type: Spontaneous
  Country: NL (occurrence: NL)
  Receive Date: 20240314
  Receipt Date: 20240314
  Transmission Date: 20240410
  Serious: Yes (Other)
  Sender: FDA-Public Use
  Company Number: None

PATIENT
  Age: 67 Year
  Sex: Male
  Weight: 88 kg

DRUGS (8)
  1. ETOPOSIDE [Suspect]
     Active Substance: ETOPOSIDE
     Indication: Small cell lung cancer metastatic
     Dosage: STRENGTH: 1000 MG, 4 TREATMENTS, EVERY 3 WEEKS, DAY 1, 2, AND 3, INFUSION 120M
     Dates: start: 20231127
  2. CARBOPLATIN [Suspect]
     Active Substance: CARBOPLATIN
     Indication: Small cell lung cancer metastatic
     Dosage: STRENGTH: 10MG/ML, ONLY ON DAY 1, INFUSION OVER 60 MINUTES
     Dates: start: 20231127
  3. LOSARTAN AND HYDROCHLOROTHIAZIDE [Concomitant]
     Active Substance: HYDROCHLOROTHIAZIDE\LOSARTAN POTASSIUM
     Dosage: STRENGTH: 50/12.5MG
  4. METOPROLOL [Concomitant]
     Active Substance: METOPROLOL
     Dosage: STRENGTH: 50 MG
  5. NIFEDIPINE [Concomitant]
     Active Substance: NIFEDIPINE
     Dosage: STRENGTH: 30MG
  6. LORMETAZEPAM [Concomitant]
     Active Substance: LORMETAZEPAM
     Dosage: STRENGTH: 1 MG
  7. DEXAMETHASONE [Concomitant]
     Active Substance: DEXAMETHASONE
     Dosage: STRENGTH: 0.5 MG
  8. ROSUVASTATIN [Concomitant]
     Active Substance: ROSUVASTATIN
     Dosage: STRENGTH: 5 MG

REACTIONS (3)
  - Pancytopenia [Unknown]
  - Tinnitus [Recovering/Resolving]
  - Deafness [Recovering/Resolving]
